FAERS Safety Report 4819369-9 (Version None)
Quarter: 2005Q4

REPORT INFORMATION
  Report Type: 
  Country: None (occurrence: None)
  Receive Date: 20051012
  Receipt Date: 20050712
  Transmission Date: 20060501
  Serious: No
  Sender: FDA-Public Use
  Company Number: A03200502137

PATIENT
  Age: 72 Year
  Sex: Male

DRUGS (5)
  1. UROXATRAL [Suspect]
     Dosage: ORAL
     Route: 048
     Dates: start: 20050705, end: 20050712
  2. DULOXETINE [Suspect]
     Indication: DEPRESSION
     Dosage: ORAL
     Route: 048
     Dates: start: 20050701, end: 20050712
  3. METFORMIN [Concomitant]
  4. ROSIGLITAZONE MALEATE [Concomitant]
  5. SIMVASTATIN [Concomitant]

REACTIONS (3)
  - DIZZINESS [None]
  - HEAD DISCOMFORT [None]
  - TREMOR [None]
